FAERS Safety Report 16340954 (Version 2)
Quarter: 2019Q2

REPORT INFORMATION
  Report Type: Spontaneous
  Country: ES (occurrence: ES)
  Receive Date: 20190522
  Receipt Date: 20190618
  Transmission Date: 20190711
  Serious: Yes (Death, Hospitalization, Other)
  Sender: FDA-Public Use
  Company Number: ES-ALEXION PHARMACEUTICALS INC-A201904194

PATIENT
  Age: 22 Month
  Sex: Female
  Weight: 10 kg

DRUGS (5)
  1. SOLIRIS [Suspect]
     Active Substance: ECULIZUMAB
     Indication: OFF LABEL USE
  2. FUROSEMIDE. [Concomitant]
     Active Substance: FUROSEMIDE
     Indication: PRODUCT USED FOR UNKNOWN INDICATION
     Dosage: UNK, SINGLE
     Route: 065
     Dates: start: 20190315
  3. INSULIN [Concomitant]
     Active Substance: INSULIN NOS
     Indication: PRODUCT USED FOR UNKNOWN INDICATION
     Dosage: UNK
     Route: 065
     Dates: start: 20190318
  4. SOLIRIS [Suspect]
     Active Substance: ECULIZUMAB
     Indication: HAEMOLYTIC URAEMIC SYNDROME
     Dosage: UNK UNK, SINGLE
     Route: 042
     Dates: start: 20190318, end: 20190318
  5. SOLIRIS [Suspect]
     Active Substance: ECULIZUMAB
     Indication: NERVOUS SYSTEM DISORDER

REACTIONS (10)
  - Lethargy [Unknown]
  - Sepsis [Unknown]
  - Cardio-respiratory arrest [Fatal]
  - Escherichia test positive [Unknown]
  - Nervous system disorder [Fatal]
  - Lenticular injury [Unknown]
  - Seizure [Unknown]
  - Hypoxic-ischaemic encephalopathy [Unknown]
  - Anuria [Unknown]
  - Off label use [Unknown]

NARRATIVE: CASE EVENT DATE: 20190318
